FAERS Safety Report 11410656 (Version 4)
Quarter: 2019Q4

REPORT INFORMATION
  Report Type: Spontaneous
  Country: US (occurrence: US)
  Receive Date: 20150824
  Receipt Date: 20191017
  Transmission Date: 20200122
  Serious: No
  Sender: FDA-Public Use
  Company Number: US-PFIZER INC-2015278181

PATIENT
  Age: 80 Year
  Sex: Female

DRUGS (3)
  1. SOMAVERT [Suspect]
     Active Substance: PEGVISOMANT
     Dosage: 10 MG, ALTERNATE DAY (EVERY OTHER DAY)
     Route: 058
  2. SOMAVERT [Suspect]
     Active Substance: PEGVISOMANT
     Indication: ACROMEGALY
     Dosage: 10 MG, 1X/DAY
     Route: 058
     Dates: start: 20150107
  3. SOMAVERT [Suspect]
     Active Substance: PEGVISOMANT
     Indication: HYPOTHALAMO-PITUITARY DISORDER
     Dosage: 10 MG, EVERY THIRD DAY
     Route: 058

REACTIONS (7)
  - Lip dry [Unknown]
  - Product use issue [Unknown]
  - Product dose omission [Unknown]
  - Pain [Unknown]
  - Dry mouth [Unknown]
  - Off label use [Unknown]
  - Fatigue [Unknown]
